FAERS Safety Report 10151068 (Version 1)
Quarter: 2014Q2

REPORT INFORMATION
  Report Type: Spontaneous
  Country: US (occurrence: US)
  Receive Date: 20140502
  Receipt Date: 20140502
  Transmission Date: 20141212
  Serious: Yes (Hospitalization, Other)
  Sender: FDA-Public Use
  Company Number: US-SA-2014SA056081

PATIENT
  Age: 67 Year
  Sex: Female

DRUGS (2)
  1. ALLEGRA [Suspect]
     Indication: COUGH
     Route: 048
  2. FLONASE [Concomitant]
     Indication: COUGH

REACTIONS (10)
  - Adverse event [Unknown]
  - Lung disorder [Unknown]
  - Pneumonia [Unknown]
  - Aphagia [Unknown]
  - Sputum increased [Unknown]
  - Malaise [Unknown]
  - Asthenia [Unknown]
  - Hypersensitivity [Unknown]
  - Wrong drug administered [Unknown]
  - Drug administration error [Unknown]
